FAERS Safety Report 18408399 (Version 2)
Quarter: 2020Q4

REPORT INFORMATION
  Report Type: Report from Study
  Country: US (occurrence: US)
  Receive Date: 20201021
  Receipt Date: 20201030
  Transmission Date: 20210114
  Serious: Yes (Congenital Anomaly)
  Sender: FDA-Public Use
  Company Number: US-VIIV HEALTHCARE LIMITED-US2020GSK207793

PATIENT
  Sex: Female
  Weight: 3.52 kg

DRUGS (4)
  1. DOLUTEGRAVIR [Suspect]
     Active Substance: DOLUTEGRAVIR
     Indication: HIV INFECTION
     Dosage: 100 MG/DAY
     Route: 064
     Dates: start: 20151222
  2. DARUNAVIR + RITONAVIR [Concomitant]
     Active Substance: DARUNAVIR\RITONAVIR
     Route: 064
  3. TRIMETHOPRIM/SULFAMETHOXAZOLE [Concomitant]
     Active Substance: SULFAMETHOXAZOLE\TRIMETHOPRIM
     Route: 064
  4. TRUVADA [Concomitant]
     Active Substance: EMTRICITABINE\TENOFOVIR DISOPROXIL FUMARATE
     Route: 064

REACTIONS (1)
  - Polydactyly [Unknown]

NARRATIVE: CASE EVENT DATE: 20160302
